FAERS Safety Report 16432398 (Version 2)
Quarter: 2019Q3

REPORT INFORMATION
  Report Type: Report from Study
  Country: GB (occurrence: GB)
  Receive Date: 20190614
  Receipt Date: 20190702
  Transmission Date: 20191004
  Serious: Yes (Hospitalization)
  Sender: FDA-Public Use
  Company Number: GB-PFIZER INC-2019251137

PATIENT
  Age: 48 Year
  Sex: Female
  Weight: 49 kg

DRUGS (6)
  1. GEMCITABINE HYDROCHLORIDE. [Suspect]
     Active Substance: GEMCITABINE HYDROCHLORIDE
     Indication: ANAL SQUAMOUS CELL CARCINOMA
     Dosage: 150 MG/M2, QD ON DAY 1,8 AND 15 OF EACH 28-DAY CYCLE
     Route: 042
     Dates: start: 20190409
  2. SRA737 [Suspect]
     Active Substance: INVESTIGATIONAL PRODUCT
     Indication: ANAL SQUAMOUS CELL CARCINOMA
     Dosage: 600 MG, SINGLE DOSE ON DAY -7
     Route: 048
     Dates: start: 20190402, end: 20190402
  3. SRA737 [Suspect]
     Active Substance: INVESTIGATIONAL PRODUCT
     Dosage: 500 MG, UNK
     Route: 048
     Dates: start: 20190524
  4. CALAMINE [Concomitant]
     Active Substance: CALAMINE\FERRIC OXIDE RED\ZINC OXIDE
     Dosage: UNK
     Dates: start: 20180420
  5. SRA737 [Suspect]
     Active Substance: INVESTIGATIONAL PRODUCT
     Dosage: 600 MG, ON DAYS 2, 3, 9,10, 16 AND 17 OF EACH 28-DAY CYCLE
     Route: 048
     Dates: start: 20190410
  6. CHLORPHENIRAMINE [CHLORPHENAMINE] [Concomitant]
     Active Substance: CHLORPHENIRAMINE
     Dosage: UNK
     Dates: start: 20190423, end: 20190508

REACTIONS (2)
  - Malaise [Recovered/Resolved]
  - Dizziness [Recovered/Resolved]

NARRATIVE: CASE EVENT DATE: 20190527
